FAERS Safety Report 21544745 (Version 1)
Quarter: 2022Q4

REPORT INFORMATION
  Report Type: Spontaneous
  Country: CN (occurrence: CN)
  Receive Date: 20221102
  Receipt Date: 20221102
  Transmission Date: 20230113
  Serious: Yes (Hospitalization)
  Sender: FDA-Public Use
  Company Number: CN-BEIGENE USA INC-BGN-2022-010426

PATIENT

DRUGS (4)
  1. BRUKINSA [Suspect]
     Active Substance: ZANUBRUTINIB
     Indication: Mantle cell lymphoma
     Dosage: 160 MILLIGRAM, BID
     Route: 048
     Dates: start: 20220930
  2. REVLIMID [Suspect]
     Active Substance: LENALIDOMIDE
     Indication: Mantle cell lymphoma
     Dosage: 25 MILLIGRAM, QOD, D1-10
     Route: 048
     Dates: start: 20220930
  3. CYCLOPHOSPHAMIDE [Suspect]
     Active Substance: CYCLOPHOSPHAMIDE
     Indication: Mantle cell lymphoma
     Dosage: 0.7 GRAM, D1
     Route: 041
     Dates: start: 20220930
  4. VINDESINE SULFATE [Suspect]
     Active Substance: VINDESINE SULFATE
     Indication: Mantle cell lymphoma
     Dosage: 2 GRAM, D1
     Route: 041
     Dates: start: 20220930

REACTIONS (1)
  - Myelosuppression [Recovering/Resolving]

NARRATIVE: CASE EVENT DATE: 20221024
